FAERS Safety Report 21618273 (Version 1)
Quarter: 2022Q4

REPORT INFORMATION
  Report Type: Report from Study
  Country: CO (occurrence: CO)
  Receive Date: 20221119
  Receipt Date: 20221119
  Transmission Date: 20230113
  Serious: Yes (Other)
  Sender: FDA-Public Use
  Company Number: CO-ABBVIE-4206997

PATIENT
  Sex: Male
  Weight: 56 kg

DRUGS (1)
  1. ZEMPLAR [Suspect]
     Active Substance: PARICALCITOL
     Indication: Chronic kidney disease
     Dosage: POST-DIALYSIS?FORM STRENGTH: 5 MICROGRAM
     Route: 042
     Dates: start: 20200730, end: 20220719

REACTIONS (4)
  - Cardiac failure [Not Recovered/Not Resolved]
  - Visual impairment [Recovering/Resolving]
  - Pericardial effusion [Not Recovered/Not Resolved]
  - Blood phosphorus abnormal [Not Recovered/Not Resolved]

NARRATIVE: CASE EVENT DATE: 20200101
